FAERS Safety Report 4803605-9 (Version None)
Quarter: 2005Q4

REPORT INFORMATION
  Report Type: 
  Country: None (occurrence: None)
  Receive Date: 20051013
  Receipt Date: 20050919
  Transmission Date: 20060501
  Serious: Yes (Death)
  Sender: FDA-Public Use
  Company Number: IMP_0895_2005

PATIENT
  Age: 39 Year

DRUGS (3)
  1. OXYCODONE [Suspect]
  2. ACETAMINOPHEN AND HYDROCODONE BITARTRATE [Suspect]
     Dosage: DF
  3. DIAZEPAM [Suspect]
     Dosage: DF

REACTIONS (1)
  - MULTIPLE DRUG OVERDOSE [None]
